FAERS Safety Report 5975078-4 (Version None)
Quarter: 2008Q4

REPORT INFORMATION
  Report Type: 
  Country: None (occurrence: None)
  Receive Date: 20081202
  Receipt Date: 20081128
  Transmission Date: 20090506
  Serious: Yes (Life-Threatening, Hospitalization, Disabling)
  Sender: FDA-Public Use
  Company Number: MX-BRISTOL-MYERS SQUIBB COMPANY-14407738

PATIENT
  Age: 64 Year
  Sex: Male
  Weight: 60 kg

DRUGS (5)
  1. CISPLATIN [Suspect]
     Indication: HEAD AND NECK CANCER
     Dosage: THERAPY STARTED ON 21JUL08. LAST DOSE GIVEN ON 21JUL08. DISCONTINUED ON 01AUG08.
     Route: 065
     Dates: start: 20080721, end: 20080801
  2. PLACEBO [Suspect]
     Indication: HEAD AND NECK CANCER
     Dosage: THERAPY STARTED ON 21JUL08. LAST DOSE GIVEN ON 21JUL08. DISCONTINUED ON 01AUG08.
     Route: 065
     Dates: start: 20080721, end: 20080721
  3. FOLIC ACID [Concomitant]
     Indication: VITAMIN SUPPLEMENTATION
     Dates: start: 20080714, end: 20080727
  4. VITAMIN B-12 [Concomitant]
     Indication: VITAMIN SUPPLEMENTATION
     Dates: start: 20080714, end: 20080714
  5. DEXAMETHASONE [Concomitant]
     Indication: PREMEDICATION
     Dates: start: 20080720, end: 20080722

REACTIONS (2)
  - INTRACRANIAL TUMOUR HAEMORRHAGE [None]
  - THROMBOCYTOPENIA [None]
